FAERS Safety Report 10052879 (Version 2)
Quarter: 2014Q2

REPORT INFORMATION
  Report Type: Spontaneous
  Country: GB (occurrence: GB)
  Receive Date: 20140402
  Receipt Date: 20140527
  Transmission Date: 20141212
  Serious: Yes (Other)
  Sender: FDA-Public Use
  Company Number: GB-THROMBOGENICS INC-JET-2014-147

PATIENT
  Sex: 0

DRUGS (1)
  1. JETREA [Suspect]
     Indication: PRODUCT USED FOR UNKNOWN INDICATION
     Dosage: 0.1 ML, ONE TIME DOSE
     Route: 031

REACTIONS (2)
  - Retinal artery occlusion [Unknown]
  - No therapeutic response [Unknown]
